FAERS Safety Report 9172447 (Version 2)
Quarter: 2014Q1

REPORT INFORMATION
  Report Type: Report from Study
  Country: IL (occurrence: IL)
  Receive Date: 20130319
  Receipt Date: 20140107
  Transmission Date: 20141002
  Serious: Yes (Hospitalization)
  Sender: FDA-Public Use
  Company Number: IL-009507513-1303ISR007985

PATIENT
  Age: 51 Year
  Sex: Male
  Weight: 71 kg

DRUGS (5)
  1. REBETOL [Suspect]
     Indication: HEPATITIS C
     Dosage: 200 MG, QOD
     Route: 048
     Dates: start: 20120803, end: 20121022
  2. VICTRELIS [Suspect]
     Indication: HEPATITIS C
     Dosage: 200 MG,4 IN 3 DAYS
     Route: 048
     Dates: start: 20120831, end: 20121022
  3. PEGINTERFERON ALFA-2A [Suspect]
     Indication: HEPATITIS C
     Dosage: 180 MICROGRAM, QW
     Route: 058
     Dates: start: 20120803, end: 20120928
  4. PEGINTERFERON ALFA-2A [Suspect]
     Dosage: 135 MICROGRAM, QW
     Route: 058
     Dates: start: 20121005, end: 20121019
  5. NEUPOGEN [Concomitant]
     Indication: NEUTROPENIA
     Dosage: 300 MICROGRAM, QW
     Route: 058
     Dates: start: 20121019

REACTIONS (4)
  - Febrile neutropenia [Recovered/Resolved]
  - Diarrhoea [Unknown]
  - Pharyngitis [Unknown]
  - Acute tonsillitis [Unknown]
